FAERS Safety Report 7108581-4 (Version None)
Quarter: 2010Q4

REPORT INFORMATION
  Report Type: 
  Country: None (occurrence: None)
  Receive Date: 20101115
  Receipt Date: 20101115
  Transmission Date: 20110411
  Serious: No
  Sender: FDA-Public Use
  Company Number: None

PATIENT
  Sex: Female
  Weight: 77.1115 kg

DRUGS (1)
  1. ALENDRONATE SODIUM [Suspect]
     Indication: OSTEOPENIA
     Dosage: 70 MG 1 WK PO
     Route: 048
     Dates: start: 20071201

REACTIONS (3)
  - ALVEOLAR OSTEITIS [None]
  - OSTEONECROSIS [None]
  - TOOTH ABSCESS [None]
